FAERS Safety Report 18133975 (Version 2)
Quarter: 2020Q4

REPORT INFORMATION
  Report Type: Spontaneous
  Country: ES (occurrence: ES)
  Receive Date: 20200811
  Receipt Date: 20201028
  Transmission Date: 20210113
  Serious: Yes (Other)
  Sender: FDA-Public Use
  Company Number: ES-BAYER-2020-155765

PATIENT
  Age: 35 Year
  Sex: Female

DRUGS (2)
  1. MIRENA [Suspect]
     Active Substance: LEVONORGESTREL
     Indication: CONTRACEPTION
     Dosage: 20 ?G PER DAY CONTINUOUSLY
     Route: 015
     Dates: start: 20100525, end: 20150525
  2. SUMIAL [Concomitant]
     Active Substance: PROPRANOLOL HYDROCHLORIDE

REACTIONS (18)
  - Periarthritis [None]
  - Hyperhidrosis [None]
  - Dizziness [None]
  - Dysuria [None]
  - Device dislocation [Recovered/Resolved]
  - Rotator cuff syndrome [None]
  - Tachycardia [None]
  - Nausea [None]
  - Tooth disorder [None]
  - Pollakiuria [None]
  - Syncope [Recovered/Resolved]
  - Palpitations [None]
  - Abdominal pain [Unknown]
  - Urinary tract infection [None]
  - Complication of device removal [None]
  - Decreased appetite [None]
  - Costochondritis [Unknown]
  - Thyroid mass [None]

NARRATIVE: CASE EVENT DATE: 20100907
